FAERS Safety Report 5902565-7 (Version None)
Quarter: 2008Q3

REPORT INFORMATION
  Report Type: 
  Country: None (occurrence: None)
  Receive Date: 20080925
  Receipt Date: 20080916
  Transmission Date: 20090109
  Serious: Yes (Hospitalization)
  Sender: FDA-Public Use
  Company Number: 2008AL010589

PATIENT
  Age: 76 Year
  Sex: Female

DRUGS (1)
  1. DIGOXIN [Suspect]
     Dosage: 0.25 MG, PO
     Route: 048

REACTIONS (12)
  - ABDOMINAL PAIN UPPER [None]
  - DIARRHOEA [None]
  - DIZZINESS [None]
  - FALL [None]
  - FATIGUE [None]
  - FEELING ABNORMAL [None]
  - HEART RATE IRREGULAR [None]
  - HYPOTENSION [None]
  - NAUSEA [None]
  - OROPHARYNGEAL PAIN [None]
  - UPPER LIMB FRACTURE [None]
  - VISUAL IMPAIRMENT [None]
